FAERS Safety Report 7571960-5 (Version None)
Quarter: 2011Q2

REPORT INFORMATION
  Report Type: 
  Country: None (occurrence: None)
  Receive Date: 20110624
  Receipt Date: 20110414
  Transmission Date: 20111010
  Serious: No
  Sender: FDA-Public Use
  Company Number: A0923011A

PATIENT
  Age: 62 Year
  Sex: Female

DRUGS (3)
  1. ZYPREXA [Concomitant]
  2. VERAMYST [Suspect]
     Dosage: 2SPR PER DAY
     Route: 045
     Dates: start: 20090101
  3. VITAMIN TAB [Concomitant]

REACTIONS (3)
  - UPPER-AIRWAY COUGH SYNDROME [None]
  - COUGH [None]
  - DRUG INEFFECTIVE [None]
